FAERS Safety Report 16540677 (Version 2)
Quarter: 2019Q3

REPORT INFORMATION
  Report Type: Spontaneous
  Country: US (occurrence: US)
  Receive Date: 20190708
  Receipt Date: 20190923
  Transmission Date: 20191004
  Serious: No
  Sender: FDA-Public Use
  Company Number: US-SA-2019SA182266

PATIENT
  Age: 35 Year
  Sex: Male

DRUGS (3)
  1. DUPIXENT [Suspect]
     Active Substance: DUPILUMAB
     Dosage: UNK
  2. PROBIOTICS NOS [Concomitant]
     Active Substance: PROBIOTICS NOS
  3. DUPIXENT [Suspect]
     Active Substance: DUPILUMAB
     Dosage: UNK
     Dates: start: 201702

REACTIONS (17)
  - Skin exfoliation [Unknown]
  - Rash macular [Unknown]
  - Motion sickness [Unknown]
  - Urticaria [Unknown]
  - Nausea [Unknown]
  - Condition aggravated [Unknown]
  - Ocular discomfort [Recovering/Resolving]
  - Decreased appetite [Unknown]
  - Skin warm [Unknown]
  - Eye swelling [Unknown]
  - Intentional product misuse [Unknown]
  - Lacrimation increased [Unknown]
  - Rash [Unknown]
  - Skin infection [Unknown]
  - Weight increased [Unknown]
  - Eye discharge [Unknown]
  - Erythema [Unknown]
